FAERS Safety Report 7279179 (Version 4)
Quarter: 2013Q3

REPORT INFORMATION
  Report Type: Spontaneous
  Country: None (occurrence: None)
  Receive Date: 20100127
  Receipt Date: 20130708
  Transmission Date: 20140515
  Serious: Yes (Hospitalization, Other)
  Sender: FDA-Public Use
  Company Number: AUR-APL-2010-00170

PATIENT
  Age: 66 Year
  Sex: Female
  Weight: 85 kg

DRUGS (14)
  1. DIABEX [Suspect]
     Indication: TYPE 2 DIABETES MELLITUS
     Route: 048
     Dates: start: 2002
  2. GLICLAZIDE [Suspect]
     Indication: RHEUMATOID ARTHRITIS
     Route: 048
     Dates: start: 2002
  3. CP-690, 550 PLACEBO [Suspect]
     Indication: RHEUMATOID ARTHRITIS
     Dosage: 10MG-WEEKLY-ORAL
     Route: 048
     Dates: start: 20090925
  4. METHOBLASTIN [Suspect]
     Indication: RHEUMATOID ARTHRITIS
     Route: 048
     Dates: start: 2001
  5. ENDEP [Suspect]
     Indication: FIBROMYALGIA
     Dosage: 10MG - DAILY - ORAL
     Route: 048
     Dates: start: 2002
  6. FERROUS SULFATE [Concomitant]
  7. FOLIC ACID [Concomitant]
  8. PARIET (RABEPRAZOLE SODIUM) [Concomitant]
  9. PREDNISOLONE [Concomitant]
  10. THYROXINE SODIUM (LEVOTHYROXINE SODIUM) [Concomitant]
  11. FISH OIL [Concomitant]
  12. MULTIVITAMINS [Concomitant]
  13. LIPITOR (ATORVASTATIN) [Concomitant]
  14. VITAMIN B12 (CYANYCOBALAMIN) [Concomitant]

REACTIONS (3)
  - Epigastric discomfort [None]
  - Bile duct stone [None]
  - Pancreatitis [None]
